FAERS Safety Report 11776811 (Version 1)
Quarter: 2015Q4

REPORT INFORMATION
  Report Type: Spontaneous
  Country: US (occurrence: US)
  Receive Date: 20151125
  Receipt Date: 20151125
  Transmission Date: 20160304
  Serious: No
  Sender: FDA-Public Use
  Company Number: US-TEVA-593368USA

PATIENT
  Age: 88 Year
  Sex: Female
  Weight: 79 kg

DRUGS (1)
  1. BUDESONIDE. [Suspect]
     Active Substance: BUDESONIDE
     Indication: ASTHMA
     Route: 055
     Dates: start: 20150825

REACTIONS (3)
  - Dizziness [Unknown]
  - Nervousness [Unknown]
  - Asthenia [Unknown]
